FAERS Safety Report 11863560 (Version 2)
Quarter: 2016Q1

REPORT INFORMATION
  Report Type: Spontaneous
  Country: TR (occurrence: TR)
  Receive Date: 20151223
  Receipt Date: 20160107
  Transmission Date: 20160526
  Serious: Yes (Life-Threatening, Other)
  Sender: FDA-Public Use
  Company Number: TR-SUN PHARMACEUTICAL INDUSTRIES LTD-2015RR-108374

PATIENT

DRUGS (1)
  1. ISOTRETINOIN [Suspect]
     Active Substance: ISOTRETINOIN
     Indication: ACNE
     Dosage: FOR THE LAST 2 MONTHS
     Route: 065

REACTIONS (6)
  - Headache [Unknown]
  - Vomiting [Unknown]
  - Loss of consciousness [Unknown]
  - Hemiparesis [Not Recovered/Not Resolved]
  - Transverse sinus thrombosis [Recovering/Resolving]
  - Seizure [Unknown]
